FAERS Safety Report 10143050 (Version 1)
Quarter: 2014Q2

REPORT INFORMATION
  Report Type: Report from Study
  Country: JP (occurrence: JP)
  Receive Date: 20140430
  Receipt Date: 20140430
  Transmission Date: 20141212
  Serious: Yes (Other)
  Sender: FDA-Public Use
  Company Number: JP-SHIONOGI, INC-2014000353

PATIENT
  Age: 2 Month
  Sex: Female
  Weight: 3.7 kg

DRUGS (3)
  1. DORIPENEM [Suspect]
     Indication: SEPSIS
     Dosage: 150 MG, QD
     Route: 041
     Dates: start: 20131115, end: 20131120
  2. CEFTRIAXONE SODIUM [Concomitant]
     Indication: SEPSIS
     Dosage: 250 MG, QD
     Route: 065
     Dates: start: 20131115, end: 20131115
  3. BIOFERMIN R [Concomitant]
     Indication: PROPHYLAXIS
     Dosage: 0.5 MG, QD
     Route: 048
     Dates: start: 20131115, end: 20131130

REACTIONS (1)
  - Blood alkaline phosphatase increased [Unknown]
